FAERS Safety Report 9633325 (Version 1)
Quarter: 2013Q4

REPORT INFORMATION
  Report Type: Spontaneous
  Country: US (occurrence: US)
  Receive Date: 20131021
  Receipt Date: 20131021
  Transmission Date: 20140711
  Serious: No
  Sender: FDA-Public Use
  Company Number: US-B.I. PHARMACEUTICALS,INC./RIDGEFIELD-2013-BI-31855BP

PATIENT
  Sex: Female

DRUGS (6)
  1. ZANTAC (RANITIDINE HYDROCHLORIDE) [Suspect]
     Indication: DYSPEPSIA
     Dosage: 150 MG
     Route: 048
     Dates: start: 20131008
  2. ZANTAC (RANITIDINE HYDROCHLORIDE) [Suspect]
     Indication: DYSPEPSIA
  3. SPIRONOLACTONE [Concomitant]
     Indication: CARDIAC DISORDER
     Dosage: 50 MG
     Route: 048
  4. COUMADIN [Concomitant]
     Indication: HEART RATE IRREGULAR
     Dosage: 2.5 MG
     Route: 048
  5. DILTIAZEM [Concomitant]
     Indication: HEART RATE IRREGULAR
     Dosage: 180 MG
     Route: 048
  6. LEVOXYL [Concomitant]
     Indication: HYPOTHYROIDISM
     Dosage: 125 MG
     Route: 048

REACTIONS (1)
  - Drug ineffective [Not Recovered/Not Resolved]
